FAERS Safety Report 5859981-1 (Version None)
Quarter: 2008Q3

REPORT INFORMATION
  Report Type: 
  Country: None (occurrence: None)
  Receive Date: 20080827
  Receipt Date: 20080813
  Transmission Date: 20090109
  Serious: Yes (Death)
  Sender: FDA-Public Use
  Company Number: MX-ELI_LILLY_AND_COMPANY-MX200808002927

PATIENT

DRUGS (4)
  1. HUMULIN N [Suspect]
     Indication: TYPE 2 DIABETES MELLITUS
     Dosage: UNK, EACH MORNING
     Route: 064
     Dates: start: 20080424
  2. ALMAGATE [Concomitant]
     Indication: NAUSEA
     Dosage: UNK, UNKNOWN
     Route: 064
  3. ELEVIT [Concomitant]
     Dosage: UNK, UNKNOWN
     Route: 064
  4. ORAL BLOOD GLUCOSE LOWERING DRUGS [Concomitant]
     Dosage: UNK, UNKNOWN
     Route: 064

REACTIONS (2)
  - DRUG EXPOSURE DURING PREGNANCY [None]
  - FOETAL HEART RATE ABNORMAL [None]
